FAERS Safety Report 25397148 (Version 1)
Quarter: 2025Q2

REPORT INFORMATION
  Report Type: Spontaneous
  Country: US (occurrence: None)
  Receive Date: 20250604
  Receipt Date: 20250604
  Transmission Date: 20250716
  Serious: Yes (Disabling)
  Sender: FDA-CTU
  Company Number: None

PATIENT
  Age: 58 Year
  Sex: Female
  Weight: 99 kg

DRUGS (1)
  1. UBRELVY [Suspect]
     Active Substance: UBROGEPANT
     Indication: Migraine
     Route: 048
     Dates: start: 20221123, end: 20241113

REACTIONS (4)
  - Pruritus [None]
  - Weight increased [None]
  - Dyspnoea [None]
  - Sleep disorder [None]

NARRATIVE: CASE EVENT DATE: 20240612
